FAERS Safety Report 17145892 (Version 1)
Quarter: 2019Q4

REPORT INFORMATION
  Report Type: Report from Study
  Country: US (occurrence: US)
  Receive Date: 20191212
  Receipt Date: 20191212
  Transmission Date: 20200122
  Serious: Yes (Other)
  Sender: FDA-Public Use
  Company Number: US-ROCHE-2489747

PATIENT

DRUGS (8)
  1. INFLIXIMAB [Suspect]
     Active Substance: INFLIXIMAB
     Indication: BIRDSHOT CHORIORETINOPATHY
     Route: 065
  2. ADALIMUMAB [Suspect]
     Active Substance: ADALIMUMAB
     Indication: BIRDSHOT CHORIORETINOPATHY
     Route: 065
  3. METHOTREXATE. [Suspect]
     Active Substance: METHOTREXATE
     Indication: BIRDSHOT CHORIORETINOPATHY
     Route: 065
  4. MYCOPHENOLATE MOFETIL. [Suspect]
     Active Substance: MYCOPHENOLATE MOFETIL
     Indication: BIRDSHOT CHORIORETINOPATHY
     Route: 065
  5. AZATHIOPRINE. [Suspect]
     Active Substance: AZATHIOPRINE
     Indication: BIRDSHOT CHORIORETINOPATHY
     Route: 065
  6. DACLIZUMAB [Suspect]
     Active Substance: DACLIZUMAB
     Indication: BIRDSHOT CHORIORETINOPATHY
     Route: 065
  7. CICLOSPORIN [Suspect]
     Active Substance: CYCLOSPORINE
     Indication: BIRDSHOT CHORIORETINOPATHY
     Route: 065
  8. SIROLIMUS. [Suspect]
     Active Substance: SIROLIMUS
     Indication: BIRDSHOT CHORIORETINOPATHY
     Route: 065

REACTIONS (13)
  - Diarrhoea [Unknown]
  - Nephropathy toxic [Unknown]
  - Gingival disorder [Unknown]
  - Rash [Unknown]
  - Herpes zoster [Unknown]
  - Neuropathy peripheral [Unknown]
  - Arthralgia [Unknown]
  - Systemic lupus erythematosus [Unknown]
  - Lysozyme increased [Unknown]
  - Myalgia [Unknown]
  - Joint stiffness [Unknown]
  - Infection [Unknown]
  - Hypertension [Unknown]
